FAERS Safety Report 10501751 (Version 2)
Quarter: 2014Q4

REPORT INFORMATION
  Report Type: Spontaneous
  Country: US (occurrence: US)
  Receive Date: 20141007
  Receipt Date: 20141008
  Transmission Date: 20150528
  Serious: No
  Sender: FDA-Public Use
  Company Number: US-009507513-1409USA008867

PATIENT
  Sex: Female

DRUGS (3)
  1. PEGINTRON [Suspect]
     Active Substance: PEGINTERFERON ALFA-2B
     Indication: HEPATITIS C
     Dosage: 150 MICROGRAM ONCE WEEKLY
     Dates: start: 20140908
  2. SOVALDI [Suspect]
     Active Substance: SOFOSBUVIR
  3. RIBASPHERE [Suspect]
     Active Substance: RIBAVIRIN

REACTIONS (2)
  - Exposure via father [Unknown]
  - No adverse event [Unknown]
